FAERS Safety Report 10231607 (Version 2)
Quarter: 2014Q2

REPORT INFORMATION
  Report Type: Spontaneous
  Country: JP (occurrence: JP)
  Receive Date: 20140611
  Receipt Date: 20140623
  Transmission Date: 20141212
  Serious: Yes (Other)
  Sender: FDA-Public Use
  Company Number: JP-009507513-1406JPN005579

PATIENT
  Age: 72 Year
  Sex: Male
  Weight: 58 kg

DRUGS (13)
  1. CANCIDAS FOR INTRAVENOUS DRIP INFUSION 50MG [Suspect]
     Indication: FEBRILE NEUTROPENIA
     Dosage: 50 MG, QD
     Route: 041
     Dates: start: 20140514, end: 20140527
  2. CANCIDAS FOR INTRAVENOUS DRIP INFUSION 70MG [Suspect]
     Indication: FEBRILE NEUTROPENIA
     Dosage: 70 MG, ONCE
     Route: 041
     Dates: start: 20140513, end: 20140513
  3. VFEND [Suspect]
     Dosage: UNK
  4. FLUCONAZOLE [Concomitant]
     Indication: FEBRILE NEUTROPENIA
     Dosage: 100 MG, QD
     Route: 048
     Dates: start: 20130608, end: 20140514
  5. ZOSYN [Concomitant]
     Indication: FEBRILE NEUTROPENIA
     Dosage: 4.5 G, QD, 4 IN 1 DAY
     Route: 051
     Dates: start: 20140513, end: 20140527
  6. VENILON [Concomitant]
     Indication: INFECTION
     Dosage: 5 G, QD
     Route: 051
     Dates: start: 20140513, end: 20140515
  7. GRAN [Concomitant]
     Indication: NEUTROPHIL COUNT DECREASED
     Dosage: 150 MICROGRAM, QD
     Route: 058
     Dates: start: 20140513, end: 20140528
  8. BASEN [Concomitant]
     Indication: DIABETES MELLITUS
     Dosage: 0.2 MG, TID
     Route: 048
     Dates: start: 20140513
  9. GLACTIV [Concomitant]
     Indication: DIABETES MELLITUS
     Dosage: 50 MG, QD
     Route: 048
     Dates: start: 20140513
  10. LAC-B [Concomitant]
     Indication: DIARRHOEA
     Dosage: 1 G, TID
     Route: 048
     Dates: start: 20130613, end: 20140522
  11. MS HOT SHIPPU [Concomitant]
     Indication: BACK PAIN
     Dosage: 5 G, QD, AS NEEDED
     Route: 062
     Dates: start: 20140517
  12. RECOMODULIN [Concomitant]
     Indication: DISSEMINATED INTRAVASCULAR COAGULATION
     Dosage: 1.6 DF, QD
     Route: 051
     Dates: start: 20140519, end: 20140526
  13. BIOFERMIN (BACILLUS SUBTILIS (+) LACTOBACILLUS ACIDOPHILUS (+) STREPTO [Concomitant]
     Indication: DIARRHOEA
     Dosage: 6 MG, TID
     Route: 048
     Dates: start: 20140523

REACTIONS (5)
  - Disseminated intravascular coagulation [Recovered/Resolved]
  - Leukopenia [Not Recovered/Not Resolved]
  - Hepatic function abnormal [Not Recovered/Not Resolved]
  - Pyrexia [Unknown]
  - Back pain [Recovering/Resolving]
